FAERS Safety Report 9512644 (Version 1)
Quarter: 2013Q3

REPORT INFORMATION
  Report Type: Spontaneous
  Country: US (occurrence: US)
  Receive Date: 20130910
  Receipt Date: 20130910
  Transmission Date: 20140515
  Serious: No
  Sender: FDA-Public Use
  Company Number: US-ASTELLAS-2013US007268

PATIENT
  Age: 52 Year
  Sex: Male

DRUGS (1)
  1. XTANDI [Suspect]
     Indication: PRODUCT USED FOR UNKNOWN INDICATION
     Dosage: 160 MG, UID/QD
     Route: 048
     Dates: start: 201306

REACTIONS (2)
  - Somnolence [Unknown]
  - Dizziness [Unknown]
